FAERS Safety Report 9666480 (Version 2)
Quarter: 2014Q1

REPORT INFORMATION
  Report Type: Spontaneous
  Country: US (occurrence: US)
  Receive Date: 20131104
  Receipt Date: 20140124
  Transmission Date: 20141002
  Serious: No
  Sender: FDA-Public Use
  Company Number: US-BIOGENIDEC-2013BI086288

PATIENT
  Age: 57 Year
  Sex: Female

DRUGS (9)
  1. TECFIDERA [Suspect]
     Indication: MULTIPLE SCLEROSIS
     Route: 048
     Dates: start: 20130729
  2. TECFIDERA [Suspect]
     Indication: MULTIPLE SCLEROSIS
     Route: 048
     Dates: start: 20130729
  3. AMPYRA [Concomitant]
  4. EFFEXOR [Concomitant]
  5. PRAVACHOL [Concomitant]
  6. PROVIGIL [Concomitant]
  7. VALTREX [Concomitant]
  8. ZOLOFT [Concomitant]
  9. LACTULOSE [Concomitant]

REACTIONS (4)
  - Constipation [Unknown]
  - Abdominal distension [Unknown]
  - Abdominal pain [Unknown]
  - Vomiting [Unknown]
